FAERS Safety Report 8574848 (Version 2)
Quarter: 2012Q4

REPORT INFORMATION
  Report Type: Report from Study
  Country: AU (occurrence: AU)
  Receive Date: 20120523
  Receipt Date: 20121031
  Transmission Date: 20130627
  Serious: Yes (Other)
  Sender: FDA-Public Use
  Company Number: AU-BRISTOL-MYERS SQUIBB COMPANY-16590085

PATIENT
  Sex: Female
  Weight: 72 kg

DRUGS (11)
  1. ORENCIA [Suspect]
     Indication: RHEUMATOID ARTHRITIS
     Route: 042
     Dates: start: 20110903
  2. ARAVA [Concomitant]
  3. PANADOL [Concomitant]
  4. PARIET [Concomitant]
  5. CELEBREX [Concomitant]
  6. SALAZOPYRIN [Concomitant]
  7. COENZYME-Q10 [Concomitant]
  8. ZOCOR [Concomitant]
  9. EFEXOR [Concomitant]
     Dosage: Efexor-XR
  10. FOLIC ACID [Concomitant]
  11. METHOTREXATE [Concomitant]

REACTIONS (2)
  - Coronary artery disease [Recovered/Resolved with Sequelae]
  - Arrhythmia [Recovered/Resolved with Sequelae]
